FAERS Safety Report 15127226 (Version 1)
Quarter: 2018Q3

REPORT INFORMATION
  Report Type: Spontaneous
  Country: US (occurrence: US)
  Receive Date: 20180614
  Receipt Date: 20180614
  Transmission Date: 20181010
  Serious: Yes (Other)
  Sender: FDA-Public Use
  Company Number: None

PATIENT
  Age: 64 Year
  Sex: Male
  Weight: 67.1 kg

DRUGS (3)
  1. ACETAMINOPHEN 325MG TAB [Concomitant]
     Dates: start: 20180405, end: 20180405
  2. DIPHENHYDRAMINE 25MG INJ [Concomitant]
     Dates: start: 20180405, end: 20180405
  3. GAMUNEX [Suspect]
     Active Substance: HUMAN IMMUNOGLOBULIN G
     Indication: HYPOGAMMAGLOBULINAEMIA
     Route: 041
     Dates: start: 20180405, end: 20180405

REACTIONS (6)
  - Infusion related reaction [None]
  - Infusion site rash [None]
  - Infusion site reaction [None]
  - Infusion site erythema [None]
  - Urticaria [None]
  - Rash papular [None]

NARRATIVE: CASE EVENT DATE: 20180405
